FAERS Safety Report 19980323 (Version 1)
Quarter: 2021Q4

REPORT INFORMATION
  Report Type: Spontaneous
  Country: CA (occurrence: CA)
  Receive Date: 20211021
  Receipt Date: 20211021
  Transmission Date: 20220303
  Serious: Yes (Hospitalization)
  Sender: FDA-Public Use
  Company Number: CA-MYLANLABS-2021M1074206

PATIENT
  Age: 49 Year
  Sex: Female
  Weight: 72.57 kg

DRUGS (3)
  1. EPIVAL [Suspect]
     Active Substance: DIVALPROEX SODIUM
     Indication: Mania
     Dosage: 1000 MILLIGRAM, QD (ONCE DAILY AT NIGHT)
     Route: 048
  2. EPIVAL [Suspect]
     Active Substance: DIVALPROEX SODIUM
     Indication: Bipolar disorder
  3. ABILIFY [Concomitant]
     Active Substance: ARIPIPRAZOLE
     Dosage: UNK

REACTIONS (8)
  - Insomnia [Not Recovered/Not Resolved]
  - Lip pain [Not Recovered/Not Resolved]
  - Lip blister [Not Recovered/Not Resolved]
  - Lip dry [Not Recovered/Not Resolved]
  - Lip pruritus [Not Recovered/Not Resolved]
  - Abdominal pain [Recovered/Resolved]
  - Tremor [Not Recovered/Not Resolved]
  - Diarrhoea [Not Recovered/Not Resolved]
